FAERS Safety Report 25494469 (Version 1)
Quarter: 2025Q2

REPORT INFORMATION
  Report Type: Spontaneous
  Country: TR (occurrence: TR)
  Receive Date: 20250630
  Receipt Date: 20250630
  Transmission Date: 20250716
  Serious: Yes (Other)
  Sender: AMGEN
  Company Number: TR-AMGEN-TURSP2025123320

PATIENT

DRUGS (8)
  1. FILGRASTIM [Suspect]
     Active Substance: FILGRASTIM
     Indication: Autologous haematopoietic stem cell transplant
     Route: 040
  2. FILGRASTIM [Suspect]
     Active Substance: FILGRASTIM
     Route: 040
  3. CYCLOPHOSPHAMIDE [Concomitant]
     Active Substance: CYCLOPHOSPHAMIDE
     Dosage: 50 MILLIGRAM/KILOGRAM, QD FOR FOUR DAYS (DAYS -5 TO -2) (2 GRAM PER SQUARE METRE)
     Route: 040
  4. MESNA [Concomitant]
     Active Substance: MESNA
     Route: 040
  5. ACYCLOVIR [Concomitant]
     Active Substance: ACYCLOVIR
     Dosage: 800 MILLIGRAM, BID (STARTED FROM THE DAY OF ADMISSION AND CONTINUED FOR ONE-YEAR POST-TRANSPLANTATIO
     Route: 048
  6. FLUCONAZOLE [Concomitant]
     Active Substance: FLUCONAZOLE
     Route: 048
  7. SULFAMETHOXAZOLE\TRIMETHOPRIM [Concomitant]
     Active Substance: SULFAMETHOXAZOLE\TRIMETHOPRIM
  8. LAPINE T-LYMPHOCYTE IMMUNE GLOBULIN [Concomitant]
     Active Substance: LAPINE T-LYMPHOCYTE IMMUNE GLOBULIN

REACTIONS (1)
  - Multiple sclerosis [Unknown]
